FAERS Safety Report 19893451 (Version 1)
Quarter: 2021Q3

REPORT INFORMATION
  Report Type: Spontaneous
  Country: CA (occurrence: CA)
  Receive Date: 20210928
  Receipt Date: 20210928
  Transmission Date: 20211014
  Serious: Yes (Life-Threatening, Hospitalization)
  Sender: FDA-Public Use
  Company Number: CA-TEVA-2021-CA-1957593

PATIENT
  Age: 18 Year
  Sex: Male
  Weight: 68 kg

DRUGS (4)
  1. MERCAPTOPURINE. [Suspect]
     Active Substance: MERCAPTOPURINE
     Route: 065
  2. PREDNISONE. [Suspect]
     Active Substance: PREDNISONE
     Indication: CHEMOTHERAPY
     Route: 065
  3. ATRIANCE [Suspect]
     Active Substance: NELARABINE
     Indication: CHEMOTHERAPY
     Route: 065
  4. METHOTREXATE. [Suspect]
     Active Substance: METHOTREXATE
     Indication: CHEMOTHERAPY
     Route: 037

REACTIONS (1)
  - Febrile neutropenia [Recovering/Resolving]
